FAERS Safety Report 9844902 (Version 1)
Quarter: 2014Q1

REPORT INFORMATION
  Report Type: Spontaneous
  Country: US (occurrence: US)
  Receive Date: 20140127
  Receipt Date: 20140127
  Transmission Date: 20141002
  Serious: No
  Sender: FDA-Public Use
  Company Number: US-MYLANLABS-2013S1000460

PATIENT
  Age: 72 Year
  Sex: Female
  Weight: 63.5 kg

DRUGS (3)
  1. CETIRIZINE HYDROCHLORIDE TABLETS [Suspect]
     Indication: THROAT IRRITATION
     Route: 048
     Dates: start: 20130104, end: 20130104
  2. SIMVASTATIN [Concomitant]
     Indication: BLOOD CHOLESTEROL INCREASED
     Route: 048
     Dates: start: 2010
  3. BUSPAR [Concomitant]
     Indication: DEPRESSION
     Route: 048

REACTIONS (1)
  - Cough [Recovered/Resolved]
